FAERS Safety Report 19901455 (Version 1)
Quarter: 2021Q3

REPORT INFORMATION
  Report Type: Spontaneous
  Country: US (occurrence: US)
  Receive Date: 20210929
  Receipt Date: 20210929
  Transmission Date: 20211014
  Serious: Yes (Other)
  Sender: FDA-Public Use
  Company Number: US-GILEAD-2021-0550256

PATIENT
  Age: 63 Year
  Sex: Female
  Weight: 60.6 kg

DRUGS (1)
  1. YESCARTA [Suspect]
     Active Substance: AXICABTAGENE CILOLEUCEL
     Indication: DIFFUSE LARGE B-CELL LYMPHOMA
     Dosage: UNK
     Route: 042
     Dates: start: 20210805, end: 20210805

REACTIONS (8)
  - Arthralgia [Unknown]
  - Memory impairment [Unknown]
  - Cytokine release syndrome [Unknown]
  - Agitation [Unknown]
  - Fatigue [Unknown]
  - Headache [Unknown]
  - Myalgia [Unknown]
  - Confusional state [Unknown]

NARRATIVE: CASE EVENT DATE: 20210812
